FAERS Safety Report 20460780 (Version 2)
Quarter: 2022Q1

REPORT INFORMATION
  Report Type: Spontaneous
  Country: US (occurrence: US)
  Receive Date: 20220211
  Receipt Date: 20220215
  Transmission Date: 20220423
  Serious: Yes (Death, Hospitalization, Other)
  Sender: FDA-Public Use
  Company Number: US-PFIZER INC-202200226262

PATIENT
  Age: 74 Year
  Sex: Male

DRUGS (1)
  1. PHENYTOIN [Suspect]
     Active Substance: PHENYTOIN
     Indication: Seizure
     Dosage: 300 MG, DAILY

REACTIONS (6)
  - Cardio-respiratory arrest [Fatal]
  - Dyspnoea [Fatal]
  - Eosinophilia [Fatal]
  - Lung infiltration [Fatal]
  - Dermatitis atopic [Unknown]
  - Vasculitis necrotising [Unknown]
